FAERS Safety Report 18438788 (Version 1)
Quarter: 2020Q4

REPORT INFORMATION
  Report Type: Spontaneous
  Country: DE (occurrence: DE)
  Receive Date: 20201028
  Receipt Date: 20201028
  Transmission Date: 20210114
  Serious: Yes (Hospitalization, Disabling)
  Sender: FDA-Public Use
  Company Number: DE-ANIPHARMA-2020-DE-000248

PATIENT
  Age: 78 Year
  Sex: Female
  Weight: 55 kg

DRUGS (5)
  1. FUROSEMIDE. [Concomitant]
     Active Substance: FUROSEMIDE
     Route: 065
  2. CANDESARTAN CILEXETIL. [Suspect]
     Active Substance: CANDESARTAN CILEXETIL
     Indication: PRODUCT USED FOR UNKNOWN INDICATION
     Route: 048
  3. AMLODIPINE [Concomitant]
     Active Substance: AMLODIPINE BESYLATE
     Route: 065
  4. ELIQUIS [Concomitant]
     Active Substance: APIXABAN
     Route: 065
  5. PANTOPRAZOLE [Concomitant]
     Active Substance: PANTOPRAZOLE
     Route: 065

REACTIONS (16)
  - Viral myocarditis [Unknown]
  - Cytokine storm [Unknown]
  - Liver disorder [Unknown]
  - Myopathy [Unknown]
  - Polyneuropathy [Unknown]
  - Essential tremor [Unknown]
  - Circulatory collapse [Unknown]
  - Pyrexia [Unknown]
  - Coronavirus infection [Unknown]
  - Dysphagia [Recovered/Resolved with Sequelae]
  - Atrial fibrillation [Unknown]
  - Liver injury [Unknown]
  - COVID-19 pneumonia [Unknown]
  - Superinfection bacterial [Unknown]
  - Dyspnoea exertional [Unknown]
  - Acute respiratory distress syndrome [Unknown]

NARRATIVE: CASE EVENT DATE: 20200326
